FAERS Safety Report 7871188-5 (Version None)
Quarter: 2011Q4

REPORT INFORMATION
  Report Type: 
  Country: None (occurrence: None)
  Receive Date: 20111029
  Receipt Date: 20110226
  Transmission Date: 20120403
  Serious: No
  Sender: FDA-Public Use
  Company Number: US-AMGEN-USASP2011008020

PATIENT
  Age: 64 Year
  Sex: Female

DRUGS (1)
  1. ENBREL [Suspect]
     Indication: RHEUMATOID ARTHRITIS
     Dosage: 50 MG, QWK
     Dates: start: 20100709

REACTIONS (10)
  - EYE IRRITATION [None]
  - DRUG DOSE OMISSION [None]
  - JOINT SWELLING [None]
  - PAIN IN EXTREMITY [None]
  - MUSCULOSKELETAL PAIN [None]
  - RASH [None]
  - EYE PRURITUS [None]
  - EYE DISCHARGE [None]
  - INJURY ASSOCIATED WITH DEVICE [None]
  - ARTHRALGIA [None]
